FAERS Safety Report 24939308 (Version 1)
Quarter: 2025Q1

REPORT INFORMATION
  Report Type: Report from Study
  Country: CA (occurrence: CA)
  Receive Date: 20250206
  Receipt Date: 20250206
  Transmission Date: 20250409
  Serious: Yes (Other)
  Sender: BIOGEN
  Company Number: CA-BIOGEN-2025BI01299574

PATIENT
  Age: 58 Year
  Sex: Female

DRUGS (1)
  1. TYSABRI [Suspect]
     Active Substance: NATALIZUMAB
     Indication: Multiple sclerosis
     Route: 050
     Dates: start: 20230120

REACTIONS (8)
  - Cerebrovascular accident [Unknown]
  - Brain fog [Unknown]
  - Neuralgia [Unknown]
  - Myalgia [Unknown]
  - Muscle strain [Unknown]
  - Muscle tightness [Unknown]
  - Peripheral swelling [Unknown]
  - Multiple sclerosis [Unknown]

NARRATIVE: CASE EVENT DATE: 20241201
